FAERS Safety Report 24197247 (Version 3)
Quarter: 2024Q4

REPORT INFORMATION
  Report Type: Report from Study
  Country: US (occurrence: US)
  Receive Date: 20240810
  Receipt Date: 20241121
  Transmission Date: 20250115
  Serious: Yes (Other)
  Sender: ABBVIE
  Company Number: US-ABBVIE-5871748

PATIENT
  Age: 66 Year
  Sex: Female
  Weight: 84 kg

DRUGS (4)
  1. HUMIRA [Suspect]
     Active Substance: ADALIMUMAB
     Indication: Rheumatoid arthritis
     Dosage: FORM STRENGTH 40 MILLIGRAM., CITRATE FREE
     Route: 058
     Dates: start: 2022
  2. HUMIRA [Suspect]
     Active Substance: ADALIMUMAB
     Dosage: CITRATE FREE, FORM STRENGTH 40 MILLIGRAM
     Route: 058
     Dates: start: 20230214
  3. HUMIRA [Suspect]
     Active Substance: ADALIMUMAB
     Dosage: CITRATE FREE, FORM STRENGTH 40 MILLIGRAM, LAST ADMIN DATE 2024
     Route: 058
     Dates: start: 20240624
  4. CYCLOBENZAPRINE [Concomitant]
     Active Substance: CYCLOBENZAPRINE
     Indication: Product used for unknown indication

REACTIONS (7)
  - Foot deformity [Unknown]
  - Aortic occlusion [Not Recovered/Not Resolved]
  - Cardiac dysfunction [Unknown]
  - Pain in extremity [Not Recovered/Not Resolved]
  - Tuberculosis [Unknown]
  - Cardiac murmur [Unknown]
  - Haemorrhage [Unknown]

NARRATIVE: CASE EVENT DATE: 20231101
